FAERS Safety Report 18455550 (Version 1)
Quarter: 2020Q4

REPORT INFORMATION
  Report Type: Spontaneous
  Country: US (occurrence: US)
  Receive Date: 20201103
  Receipt Date: 20201103
  Transmission Date: 20210114
  Serious: No
  Sender: FDA-Public Use
  Company Number: US-TEVA-2020-US-1844029

PATIENT
  Age: 82 Year
  Sex: Female

DRUGS (1)
  1. METHYLPREDNISOLONE TEVA [Suspect]
     Active Substance: METHYLPREDNISOLONE
     Route: 065
     Dates: start: 20201024

REACTIONS (1)
  - Pollakiuria [Recovered/Resolved]

NARRATIVE: CASE EVENT DATE: 20201024
